FAERS Safety Report 25773597 (Version 1)
Quarter: 2025Q3

REPORT INFORMATION
  Report Type: Spontaneous
  Country: GB (occurrence: GB)
  Receive Date: 20250908
  Receipt Date: 20250908
  Transmission Date: 20251021
  Serious: Yes (Death, Hospitalization)
  Sender: CHEPLAPHARM
  Company Number: GB-CHEPLA-2025010515

PATIENT
  Age: 7 Decade
  Sex: Male

DRUGS (4)
  1. CAPECITABINE [Suspect]
     Active Substance: CAPECITABINE
     Indication: Prostate cancer
     Dates: start: 20221018
  2. CAPECITABINE [Suspect]
     Active Substance: CAPECITABINE
     Indication: Colon cancer stage II
     Dates: start: 20221018
  3. OXALIPLATIN [Concomitant]
     Active Substance: OXALIPLATIN
     Indication: Prostate cancer
  4. OXALIPLATIN [Concomitant]
     Active Substance: OXALIPLATIN
     Indication: Colon cancer stage II

REACTIONS (8)
  - Intestinal ischaemia [Fatal]
  - Colitis [Fatal]
  - Pancytopenia [Unknown]
  - Tachycardia [Unknown]
  - Atrial fibrillation [Unknown]
  - Tachypnoea [Unknown]
  - Hypoxia [Unknown]
  - Pneumatosis intestinalis [Unknown]

NARRATIVE: CASE EVENT DATE: 20221108
